FAERS Safety Report 24028073 (Version 1)
Quarter: 2024Q2

REPORT INFORMATION
  Report Type: Spontaneous
  Country: US (occurrence: US)
  Receive Date: 20240628
  Receipt Date: 20240628
  Transmission Date: 20240715
  Serious: No
  Sender: FDA-Public Use
  Company Number: US-BAYER-2024A092260

PATIENT
  Age: 83 Year
  Sex: Female

DRUGS (3)
  1. MIRALAX [Suspect]
     Active Substance: POLYETHYLENE GLYCOL 3350
     Indication: Constipation
     Dosage: 1 DF
     Route: 048
     Dates: start: 20240621, end: 20240624
  2. VITAMINS [Concomitant]
     Active Substance: VITAMINS
     Dosage: UNK
  3. Dexilend [Concomitant]
     Dosage: UNK

REACTIONS (1)
  - Drug ineffective [Unknown]

NARRATIVE: CASE EVENT DATE: 20240621
